FAERS Safety Report 10050448 (Version 3)
Quarter: 2014Q2

REPORT INFORMATION
  Report Type: Report from Study
  Country: US (occurrence: US)
  Receive Date: 20140401
  Receipt Date: 20140506
  Transmission Date: 20141212
  Serious: Yes (Hospitalization)
  Sender: FDA-Public Use
  Company Number: US-ACTELION-A-NJ2011-47617

PATIENT
  Age: 52 Year
  Sex: Female

DRUGS (2)
  1. VENTAVIS [Suspect]
     Indication: PULMONARY ARTERIAL HYPERTENSION
     Dosage: 5 UNK, 6-9X/DAY
     Route: 055
  2. COUMADIN [Concomitant]

REACTIONS (2)
  - Anaemia [Unknown]
  - Sickle cell anaemia with crisis [Unknown]
